FAERS Safety Report 8215014-3 (Version None)
Quarter: 2012Q1

REPORT INFORMATION
  Report Type: 
  Country: None (occurrence: None)
  Receive Date: 20120316
  Receipt Date: 20120306
  Transmission Date: 20120608
  Serious: Yes (Other)
  Sender: FDA-Public Use
  Company Number: JP-NAPPMUNDI-MAG-2011-0001787

PATIENT
  Sex: Male

DRUGS (7)
  1. PRIMPERAN TAB [Concomitant]
  2. OHNES SP [Concomitant]
     Dosage: 9 DF, DAILY
     Route: 048
     Dates: start: 20110930
  3. BUPRENORPHINE [Suspect]
     Indication: ARTHRALGIA
  4. NOVAMIN                            /00013301/ [Concomitant]
  5. MOTILIUM [Concomitant]
     Indication: PROPHYLAXIS OF NAUSEA AND VOMITING
     Dosage: 30 MG, DAILY
     Route: 048
     Dates: start: 20110930
  6. BUPRENORPHINE [Suspect]
     Indication: OSTEOARTHRITIS
     Dosage: 5 MCG, Q1H
     Route: 062
     Dates: start: 20110930, end: 20111031
  7. MIYA BM [Concomitant]
     Dosage: 6.00 MG, DAILY
     Route: 048
     Dates: start: 20110930

REACTIONS (3)
  - NAUSEA [None]
  - BRADYARRHYTHMIA [None]
  - VOMITING [None]
